FAERS Safety Report 7403335-3 (Version None)
Quarter: 2011Q1

REPORT INFORMATION
  Report Type: 
  Country: None (occurrence: None)
  Receive Date: 20110330
  Receipt Date: 20110322
  Transmission Date: 20110831
  Serious: Yes (Other)
  Sender: FDA-Public Use
  Company Number: CPL-2011-0005

PATIENT
  Age: 53 Year
  Sex: Male

DRUGS (2)
  1. AMIODARONE [Concomitant]
  2. LIOTHYRONINE SODIUM TABLETS USP (LIOTHYRONINE SODIUM) TABLET, 5MCG [Suspect]
     Indication: THYROID DISORDER
     Dosage: 5 MCG, TID, ORAL
     Route: 048

REACTIONS (5)
  - WRONG DRUG ADMINISTERED [None]
  - DRUG DISPENSING ERROR [None]
  - TRI-IODOTHYRONINE INCREASED [None]
  - THYROXINE FREE INCREASED [None]
  - ATRIAL FIBRILLATION [None]
